FAERS Safety Report 10281942 (Version 1)
Quarter: 2014Q3

REPORT INFORMATION
  Report Type: Spontaneous
  Country: FR (occurrence: FR)
  Receive Date: 20140707
  Receipt Date: 20140707
  Transmission Date: 20150326
  Serious: Yes (Hospitalization, Other)
  Sender: FDA-Public Use
  Company Number: FR-PFIZER INC-2014181399

PATIENT
  Age: 45 Year
  Sex: Female

DRUGS (4)
  1. THERALENE [Suspect]
     Active Substance: TRIMEPRAZINE
     Dosage: 50 GTT, SINGLE
     Route: 048
     Dates: start: 20140511, end: 20140511
  2. ZOPICLONE [Suspect]
     Active Substance: ZOPICLONE
     Indication: INSOMNIA
     Dosage: 6 DF, SINGLE
     Route: 048
     Dates: start: 20140511, end: 20140511
  3. XANAX [Suspect]
     Active Substance: ALPRAZOLAM
     Indication: ANXIETY
     Dosage: 1 MG, SINGLE
     Route: 048
     Dates: start: 20140511, end: 20140511
  4. LAMALINE [Suspect]
     Active Substance: ACETAMINOPHEN\CAFFEINE\OPIUM
     Indication: PAIN
     Dosage: 18 DF, SINGLE
     Route: 048
     Dates: start: 20140511, end: 20140511

REACTIONS (4)
  - Amnesia [Recovered/Resolved]
  - Dysphonia [Recovered/Resolved]
  - Somnolence [Recovered/Resolved]
  - Suicide attempt [Unknown]

NARRATIVE: CASE EVENT DATE: 20140511
